FAERS Safety Report 5012935-X (Version None)
Quarter: 2006Q2

REPORT INFORMATION
  Report Type: 
  Country: None (occurrence: None)
  Receive Date: 20060530
  Receipt Date: 20060502
  Transmission Date: 20061013
  Serious: Yes (Hospitalization)
  Sender: FDA-Public Use
  Company Number: 2006GB00745

PATIENT
  Age: 56 Year
  Sex: Male

DRUGS (8)
  1. ROSUVASTATIN [Suspect]
     Indication: HYPERCHOLESTEROLAEMIA
     Route: 048
     Dates: start: 20060104
  2. WARFARIN SODIUM [Suspect]
     Dosage: VARIABLE DOSE
     Route: 065
     Dates: start: 20060101, end: 20060304
  3. WARFARIN SODIUM [Suspect]
     Dosage: VARIABLE DOSE
     Route: 065
     Dates: start: 20060306
  4. BISOPROLOL [Concomitant]
  5. PERINDOPRIL [Concomitant]
  6. OMEPRAZOLE [Concomitant]
  7. AMIODARONE [Concomitant]
  8. FRUSEMIDE [Concomitant]

REACTIONS (2)
  - HAEMATURIA [None]
  - INTERNATIONAL NORMALISED RATIO INCREASED [None]
